FAERS Safety Report 17558536 (Version 2)
Quarter: 2020Q2

REPORT INFORMATION
  Report Type: Spontaneous
  Country: FR (occurrence: FR)
  Receive Date: 20200318
  Receipt Date: 20200423
  Transmission Date: 20200713
  Serious: Yes (Other)
  Sender: FDA-Public Use
  Company Number: FR-009507513-2003FRA004735

PATIENT
  Age: 90 Year
  Sex: Male

DRUGS (1)
  1. COZAAR [Suspect]
     Active Substance: LOSARTAN POTASSIUM
     Route: 048

REACTIONS (6)
  - Cough [Unknown]
  - Wrong technique in product usage process [Unknown]
  - Supraventricular tachycardia [Unknown]
  - Eosinophilia [Unknown]
  - Inappropriate schedule of product administration [Unknown]
  - Myocarditis [Unknown]
